FAERS Safety Report 10252570 (Version 1)
Quarter: 2014Q2

REPORT INFORMATION
  Report Type: Report from Study
  Country: KR (occurrence: KR)
  Receive Date: 20140623
  Receipt Date: 20140623
  Transmission Date: 20141212
  Serious: Yes (Hospitalization)
  Sender: FDA-Public Use
  Company Number: KR-SA-2014SA076181

PATIENT
  Age: 50 Year
  Sex: Male
  Weight: 68 kg

DRUGS (4)
  1. LANTUS [Suspect]
     Indication: DIABETES MELLITUS
     Dosage: DOSE:12 UNIT(S)
     Route: 058
     Dates: start: 20140320
  2. LANTUS [Suspect]
     Indication: DIABETES MELLITUS
     Dosage: DOSE:18 UNIT(S)
     Route: 058
     Dates: start: 2014
  3. APIDRA [Suspect]
     Indication: DIABETES MELLITUS
     Dosage: 12-18-18 UNIT
     Route: 058
     Dates: start: 20140320
  4. APIDRA [Suspect]
     Indication: DIABETES MELLITUS
     Dosage: 18-18-18
     Route: 058
     Dates: start: 2014

REACTIONS (1)
  - Tinnitus [Recovered/Resolved]
